FAERS Safety Report 23691104 (Version 2)
Quarter: 2024Q2

REPORT INFORMATION
  Report Type: Spontaneous
  Country: US (occurrence: US)
  Receive Date: 20240401
  Receipt Date: 20240412
  Transmission Date: 20240716
  Serious: Yes (Life-Threatening, Hospitalization)
  Sender: FDA-Public Use
  Company Number: US-TEVA-VS-3174323

PATIENT
  Age: 1 Year
  Sex: Female

DRUGS (21)
  1. METHYLPREDNISOLONE [Suspect]
     Active Substance: METHYLPREDNISOLONE
     Indication: Drug eruption
     Route: 065
  2. INTERFERON ALFA-2A OR INTERFERON ALFA-2B [Suspect]
     Active Substance: INTERFERON ALFA-2A OR INTERFERON ALFA-2B
     Indication: Subacute sclerosing panencephalitis
     Dosage: 200,000 UNITS/M2 ON DAY 2
     Route: 037
  3. INTERFERON ALFA-2A OR INTERFERON ALFA-2B [Suspect]
     Active Substance: INTERFERON ALFA-2A OR INTERFERON ALFA-2B
     Indication: Subacute sclerosing panencephalitis
     Dosage: 1,000,000 UNITS/M2  FROM DAY 8
     Route: 037
  4. INTERFERON ALFA-2A OR INTERFERON ALFA-2B [Suspect]
     Active Substance: INTERFERON ALFA-2A OR INTERFERON ALFA-2B
     Indication: Subacute sclerosing panencephalitis
     Dosage: 100,000 UNITS/M2 ON DAY 1
     Route: 037
  5. INTERFERON ALFA-2A OR INTERFERON ALFA-2B [Suspect]
     Active Substance: INTERFERON ALFA-2A OR INTERFERON ALFA-2B
     Indication: Subacute sclerosing panencephalitis
     Dosage: 400,000 UNITS/M2 ON DAY 4
     Route: 037
  6. INTERFERON ALFA-2A OR INTERFERON ALFA-2B [Suspect]
     Active Substance: INTERFERON ALFA-2A OR INTERFERON ALFA-2B
     Indication: Subacute sclerosing panencephalitis
     Dosage: 300,000 UNITS/M2 ON DAY 3
     Route: 037
  7. INTERFERON ALFA-2A OR INTERFERON ALFA-2B [Suspect]
     Active Substance: INTERFERON ALFA-2A OR INTERFERON ALFA-2B
     Indication: Subacute sclerosing panencephalitis
     Dosage: 500,000 UNITS/M2 ON DAY 5
     Route: 037
  8. RITUXIMAB [Suspect]
     Active Substance: RITUXIMAB
     Indication: Prophylaxis against transplant rejection
     Route: 065
  9. PROQUAD [Suspect]
     Active Substance: MEASLES VIRUS STRAIN ENDERS^ ATTENUATED EDMONSTON LIVE ANTIGEN\MUMPS VIRUS STRAIN B LEVEL JERYL LYNN
     Indication: Immunisation
     Route: 065
  10. RIBAVIRIN [Suspect]
     Active Substance: RIBAVIRIN
     Indication: Subacute sclerosing panencephalitis
     Dosage: 16 MG/KG/DOSE FROM DAY 1-5; FOR 16 DOSES
     Route: 042
  11. RIBAVIRIN [Suspect]
     Active Substance: RIBAVIRIN
     Indication: Subacute sclerosing panencephalitis
     Dosage: 33 MG/KG/DOSE LOAD ON DAY 1
     Route: 042
  12. RIBAVIRIN [Suspect]
     Active Substance: RIBAVIRIN
     Indication: Subacute sclerosing panencephalitis
     Dosage: 8 MG/KG/DOSE FROM DAY 6
     Route: 042
  13. Immunoglobulin [Concomitant]
     Indication: Hypogammaglobulinaemia
     Route: 042
  14. THIOTEPA [Suspect]
     Active Substance: THIOTEPA
     Indication: Prophylaxis against transplant rejection
     Route: 065
  15. VITAMIN A [Concomitant]
     Active Substance: VITAMIN A
     Indication: Measles post vaccine
     Dosage: IN EQUALLY DIVIDED DOSES
     Route: 030
  16. CYCLOPHOSPHAMIDE [Suspect]
     Active Substance: CYCLOPHOSPHAMIDE
     Indication: Prophylaxis against transplant rejection
     Route: 065
  17. THYMOCYTE IMMUNE GLOBULIN NOS [Suspect]
     Active Substance: THYMOCYTE IMMUNE GLOBULIN NOS
     Indication: Prophylaxis against transplant rejection
     Route: 065
  18. MELPHALAN [Suspect]
     Active Substance: MELPHALAN
     Indication: Prophylaxis against transplant rejection
     Route: 065
  19. BUSULFAN [Suspect]
     Active Substance: BUSULFAN
     Indication: Prophylaxis against transplant rejection
     Route: 065
  20. INOSINE PRANOBEX [Suspect]
     Active Substance: INOSINE PRANOBEX
     Indication: Subacute sclerosing panencephalitis
     Dosage: 25 MG/KG/DOSE
     Route: 048
  21. RIBAVIRIN [Suspect]
     Active Substance: RIBAVIRIN
     Indication: Subacute sclerosing panencephalitis
     Route: 048

REACTIONS (6)
  - Measles post vaccine [Recovered/Resolved]
  - Atrophy [Unknown]
  - Subacute sclerosing panencephalitis [Recovering/Resolving]
  - Off label use [Unknown]
  - Drug ineffective [Unknown]
  - Respiratory failure [Recovering/Resolving]
